FAERS Safety Report 17551020 (Version 1)
Quarter: 2020Q1

REPORT INFORMATION
  Report Type: Spontaneous
  Country: US (occurrence: US)
  Receive Date: 20200309
  Receipt Date: 20200309
  Transmission Date: 20200409
  Serious: Yes (Other)
  Sender: FDA-Public Use
  Company Number: None

PATIENT
  Age: 66 Year
  Sex: Female

DRUGS (9)
  1. PROAIR HFA [Concomitant]
     Active Substance: ALBUTEROL SULFATE
  2. MUCINEX [Concomitant]
     Active Substance: GUAIFENESIN
  3. CHLORDIAZEPOXIDE. [Concomitant]
     Active Substance: CHLORDIAZEPOXIDE
  4. TYLENOL [Concomitant]
     Active Substance: ACETAMINOPHEN
  5. FINACEA [Concomitant]
     Active Substance: AZELAIC ACID
  6. PEPCID [Concomitant]
     Active Substance: FAMOTIDINE
  7. ENBREL [Suspect]
     Active Substance: ETANERCEPT
     Indication: PSORIASIS
     Dosage: ?          QUANTITY:4 DF DOSAGE FORM;?
     Route: 058
     Dates: start: 20191025, end: 20191120
  8. DICYCLOMINE [Concomitant]
     Active Substance: DICYCLOMINE HYDROCHLORIDE
  9. ALVESCO [Concomitant]
     Active Substance: CICLESONIDE

REACTIONS (4)
  - Therapy cessation [None]
  - Injection site reaction [None]
  - Injection site swelling [None]
  - Injection site erythema [None]

NARRATIVE: CASE EVENT DATE: 20191026
